FAERS Safety Report 6474018-1 (Version None)
Quarter: 2009Q4

REPORT INFORMATION
  Report Type: 
  Country: None (occurrence: None)
  Receive Date: 20091204
  Receipt Date: 20090813
  Transmission Date: 20100525
  Serious: No
  Sender: FDA-Public Use
  Company Number: US-AMGEN-KDL325510

PATIENT
  Sex: Female

DRUGS (11)
  1. ENBREL [Suspect]
     Indication: POLYARTHRITIS
     Route: 058
     Dates: start: 20080101, end: 20090301
  2. METHOTREXATE [Concomitant]
     Dates: start: 20071201
  3. CELEBREX [Concomitant]
  4. FOLIC ACID [Concomitant]
  5. VOLTAREN [Concomitant]
  6. LEVOTHYROXINE SODIUM [Concomitant]
  7. CALTRATE [Concomitant]
  8. TYLENOL (CAPLET) [Concomitant]
  9. HYDROXYCHLOROQUINE SULFATE [Concomitant]
  10. ACTONEL [Concomitant]
  11. CALCIUM [Concomitant]

REACTIONS (8)
  - CYSTITIS [None]
  - DRUG INEFFECTIVE [None]
  - FUNGAL INFECTION [None]
  - INFECTION [None]
  - LIGAMENT RUPTURE [None]
  - OSTEOARTHRITIS [None]
  - SERONEGATIVE ARTHRITIS [None]
  - STOMATITIS [None]
